FAERS Safety Report 9254944 (Version 1)
Quarter: 2013Q2

REPORT INFORMATION
  Report Type: Spontaneous
  Country: US (occurrence: None)
  Receive Date: 20130419
  Receipt Date: 20130419
  Transmission Date: 20140414
  Serious: Yes (Other)
  Sender: FDA-Public Use
  Company Number: 1678593

PATIENT
  Age: 22 Month
  Sex: Male

DRUGS (16)
  1. DEXMEDETOMIDINE HYDROCHLORIDE [Suspect]
     Indication: EXTUBATION
     Dosage: 1 MCG/KG
  2. ALBUTEROL [Suspect]
     Indication: ASTHMA
  3. BUDESONIDE [Concomitant]
  4. DOCUSATE [Concomitant]
  5. FENTANYL [Concomitant]
  6. FUROSEMIDE [Concomitant]
  7. GLYCERIN [Concomitant]
  8. SPIRONOLACTONE AND HYDROCHLOROTHIAZIDE [Concomitant]
  9. IPRATROPIUM [Concomitant]
  10. LANSOPRAZOLE [Concomitant]
  11. ROCURONIUM [Concomitant]
  12. VECURONIUM [Concomitant]
  13. VANCOMYCIN [Concomitant]
  14. METHYLPREDNISOLONE [Concomitant]
  15. MIDAZOLAM [Concomitant]
  16. MORPHINE [Suspect]

REACTIONS (7)
  - Electrocardiogram QT prolonged [None]
  - Sinus bradycardia [None]
  - Pleural effusion [None]
  - Respiratory failure [None]
  - Blood pressure fluctuation [None]
  - Torsade de pointes [None]
  - Hypocalcaemia [None]
